FAERS Safety Report 15509017 (Version 2)
Quarter: 2020Q1

REPORT INFORMATION
  Report Type: Spontaneous
  Country: CA (occurrence: CA)
  Receive Date: 20181016
  Receipt Date: 20200326
  Transmission Date: 20200409
  Serious: Yes (Other)
  Sender: FDA-Public Use
  Company Number: CA-GLAXOSMITHKLINE-CA2018187218

PATIENT
  Age: 30 Year
  Sex: Female

DRUGS (2)
  1. NICOTINE. [Suspect]
     Active Substance: NICOTINE
     Indication: SMOKING CESSATION THERAPY
     Dosage: 10-12 DAY
     Route: 048
     Dates: start: 19880425
  2. NICOTINE. [Suspect]
     Active Substance: NICOTINE
     Dosage: 8-10 DAY APPROXLAST DOSE ADMINISTERED: 02/MAR/1988
     Route: 048
     Dates: start: 19880129

REACTIONS (5)
  - Dry mouth [Recovered/Resolved with Sequelae]
  - Stomatitis [Recovered/Resolved with Sequelae]
  - Rash vesicular [Recovered/Resolved with Sequelae]
  - Glossitis [Recovered/Resolved with Sequelae]
  - Menstruation delayed [Recovered/Resolved with Sequelae]

NARRATIVE: CASE EVENT DATE: 19880427
